FAERS Safety Report 20981280 (Version 1)
Quarter: 2022Q2

REPORT INFORMATION
  Report Type: Spontaneous
  Country: JP (occurrence: None)
  Receive Date: 20220620
  Receipt Date: 20220620
  Transmission Date: 20220720
  Serious: Yes (Other)
  Sender: FDA-Public Use
  Company Number: 2022A223167

PATIENT
  Age: 57 Year
  Sex: Female

DRUGS (1)
  1. SYMBICORT [Suspect]
     Active Substance: BUDESONIDE\FORMOTEROL FUMARATE DIHYDRATE
     Indication: Asthma
     Dosage: DOSE AND FREQUENCY UNKNOWN UNKNOWN
     Route: 055

REACTIONS (2)
  - Asthma [Recovering/Resolving]
  - Nocturnal dyspnoea [Recovered/Resolved]
